FAERS Safety Report 9805924 (Version 1)
Quarter: 2014Q1

REPORT INFORMATION
  Report Type: Report from Study
  Country: BE (occurrence: BE)
  Receive Date: 20140109
  Receipt Date: 20140109
  Transmission Date: 20141002
  Serious: Yes (Death)
  Sender: FDA-Public Use
  Company Number: PHHY2014BE001940

PATIENT
  Sex: Female

DRUGS (4)
  1. ACLASTA [Suspect]
     Dosage: 5 MG, ONCE YEARLY
     Route: 042
     Dates: start: 2010
  2. ACLASTA [Suspect]
     Dosage: 5 MG, ONCE YEARLY
     Route: 042
     Dates: start: 2011
  3. ACLASTA [Suspect]
     Dosage: 5 MG, ONCE YEARLY
     Route: 042
     Dates: start: 2012
  4. ACLASTA [Suspect]
     Dosage: 5 MG, ONCE YEARLY
     Route: 042
     Dates: start: 20130206

REACTIONS (1)
  - Death [Fatal]
